FAERS Safety Report 6308433-3 (Version None)
Quarter: 2009Q3

REPORT INFORMATION
  Report Type: 
  Country: None (occurrence: None)
  Receive Date: 20090813
  Receipt Date: 20090807
  Transmission Date: 20100115
  Serious: Yes (Other)
  Sender: FDA-Public Use
  Company Number: US-ASTRAZENECA-2008UW16301

PATIENT
  Age: 58 Year
  Sex: Female

DRUGS (10)
  1. NEXIUM [Suspect]
     Route: 048
  2. ZOMIG [Suspect]
     Indication: MIGRAINE
     Dosage: ZOMIG 2 TABLETS EVERY DAY (PATIENT FIRST SAID 5 MG BUT THEN THOUGHT IT MIGHT BE 2.5 MG)
     Route: 048
  3. ALBUTEROL [Concomitant]
  4. TAGAMET [Concomitant]
  5. XANAX [Concomitant]
  6. ZOMIT [Concomitant]
  7. TOPROL-XL [Concomitant]
     Route: 048
  8. GLYBURIDE [Concomitant]
     Indication: DIABETES MELLITUS
  9. METOPROLOL TARTRATE [Concomitant]
     Indication: HYPERTENSION
  10. PROAIR HFA [Concomitant]
     Indication: ASTHMA

REACTIONS (3)
  - BACK DISORDER [None]
  - BREAST CANCER [None]
  - MIGRAINE [None]
